FAERS Safety Report 8711701 (Version 2)
Quarter: 2015Q1

REPORT INFORMATION
  Report Type: Report from Study
  Country: US (occurrence: US)
  Receive Date: 20120829
  Receipt Date: 20150219
  Transmission Date: 20150721
  Serious: Yes (Other)
  Sender: FDA-Public Use
  Company Number: US-ROCHE-1096769

PATIENT
  Sex: Female
  Weight: 52.2 kg

DRUGS (24)
  1. XOLAIR [Suspect]
     Active Substance: OMALIZUMAB
     Indication: ASTHMA
     Route: 058
  2. CLARINEX [Concomitant]
     Active Substance: DESLORATADINE
  3. ASTELIN (UNITED STATES) [Concomitant]
     Route: 065
  4. FLONASE (UNITED STATES) [Concomitant]
  5. AFRIN (OXYMETAZOLINE HYDROCHLORIDE) [Concomitant]
  6. BENADRYL [Concomitant]
     Active Substance: DIPHENHYDRAMINE HYDROCHLORIDE
  7. LOTRISONE [Concomitant]
     Active Substance: BETAMETHASONE DIPROPIONATE\CLOTRIMAZOLE
     Route: 061
  8. ALBUTEROL. [Concomitant]
     Active Substance: ALBUTEROL
     Dosage: 2 PUFFS Q 4-6 HRS PRN
     Route: 065
  9. CLARINEX-D [Concomitant]
     Active Substance: DESLORATADINE\PSEUDOEPHEDRINE SULFATE
  10. MEDROL [Concomitant]
     Active Substance: METHYLPREDNISOLONE
     Route: 048
  11. PREDNISONE. [Concomitant]
     Active Substance: PREDNISONE
  12. SOLU-MEDROL [Concomitant]
     Active Substance: METHYLPREDNISOLONE SODIUM SUCCINATE
  13. ADVAIR HFA [Concomitant]
     Active Substance: FLUTICASONE PROPIONATE\SALMETEROL XINAFOATE
     Route: 065
  14. OMNARIS [Concomitant]
     Active Substance: CICLESONIDE
  15. ALAVERT ALLERGY [Concomitant]
     Active Substance: LORATADINE
  16. CORTISONE [Concomitant]
     Active Substance: CORTISONE\HYDROCORTISONE
     Route: 061
  17. ZYRTEC-D [Concomitant]
     Active Substance: CETIRIZINE HYDROCHLORIDE\PSEUDOEPHEDRINE HYDROCHLORIDE
  18. CLARITIN [Concomitant]
     Active Substance: LORATADINE
  19. CLARITIN-D 12 HOUR [Concomitant]
     Active Substance: LORATADINE\PSEUDOEPHEDRINE SULFATE
  20. AUGMENTIN [Concomitant]
     Active Substance: AMOXICILLIN\CLAVULANATE POTASSIUM
     Route: 065
  21. XOLAIR [Suspect]
     Active Substance: OMALIZUMAB
     Route: 058
  22. ZYRTEC [Concomitant]
     Active Substance: CETIRIZINE HYDROCHLORIDE
  23. NASONEX [Concomitant]
     Active Substance: MOMETASONE FUROATE
  24. DEXAMETHASONE. [Concomitant]
     Active Substance: DEXAMETHASONE
     Route: 065

REACTIONS (19)
  - Cough [Unknown]
  - Wheezing [Unknown]
  - Rash [Unknown]
  - Hypersensitivity [Unknown]
  - Sinusitis [Unknown]
  - Anxiety [Unknown]
  - Eczema [Unknown]
  - Asthma [Unknown]
  - Rhinitis [Unknown]
  - Pruritus [Unknown]
  - Urticaria [Unknown]
  - Dyspnoea paroxysmal nocturnal [Unknown]
  - Fatigue [Unknown]
  - Conjunctivitis [Unknown]
  - Dyspnoea [Unknown]
  - Paranasal sinus discomfort [Unknown]
  - Quality of life decreased [Unknown]
  - Mood swings [Unknown]
  - Anger [Unknown]
